FAERS Safety Report 4945616-9 (Version None)
Quarter: 2006Q1

REPORT INFORMATION
  Report Type: 
  Country: None (occurrence: None)
  Receive Date: 20060117
  Receipt Date: 20051110
  Transmission Date: 20060701
  Serious: Yes (Hospitalization)
  Sender: FDA-Public Use
  Company Number: A03200503748

PATIENT
  Sex: Female

DRUGS (2)
  1. PLAVIX [Suspect]
     Dosage: 75 MG QD ORAL
     Route: 048
  2. WARFARIN SODIUM [Concomitant]

REACTIONS (1)
  - CEREBROVASCULAR ACCIDENT [None]
